FAERS Safety Report 4564567-5 (Version None)
Quarter: 2005Q1

REPORT INFORMATION
  Report Type: 
  Country: None (occurrence: None)
  Receive Date: 20050126
  Receipt Date: 20050114
  Transmission Date: 20050727
  Serious: Yes (Other)
  Sender: FDA-Public Use
  Company Number: HQWYE635914JAN05

PATIENT
  Age: 64 Year
  Sex: Male

DRUGS (5)
  1. TRANGOREX (AMIODARONE, TABLETS) [Suspect]
     Indication: ARRHYTHMIA
     Dosage: 2 TABLET 1X PER 1 DAY
     Route: 048
  2. TRANGOREX (AMIODARONE, TABLETS) [Suspect]
     Indication: ATRIAL FIBRILLATION
     Dosage: 2 TABLET 1X PER 1 DAY
     Route: 048
  3. DABONAL (ENALAPRIL MALEATE) [Concomitant]
  4. DINISOR (DILTIAZEM HYDROCHLORIDE) [Concomitant]
  5. SINTROM [Concomitant]

REACTIONS (4)
  - BODY TEMPERATURE INCREASED [None]
  - HYPERBILIRUBINAEMIA [None]
  - JAUNDICE [None]
  - TRANSAMINASES INCREASED [None]
